FAERS Safety Report 10467193 (Version 3)
Quarter: 2015Q2

REPORT INFORMATION
  Report Type: Spontaneous
  Country: US (occurrence: US)
  Receive Date: 20140922
  Receipt Date: 20150402
  Transmission Date: 20150821
  Serious: Yes (Death, Hospitalization, Other)
  Sender: FDA-Public Use
  Company Number: US-MERCK-1409USA009896

PATIENT
  Sex: Female
  Weight: 70.9 kg

DRUGS (1)
  1. JANUVIA [Suspect]
     Active Substance: SITAGLIPTIN PHOSPHATE
     Indication: TYPE 2 DIABETES MELLITUS
     Dosage: 100 MG, QD
     Route: 048
     Dates: start: 20070710, end: 20121210

REACTIONS (32)
  - Dehydration [Unknown]
  - Depression [Unknown]
  - Haematoma [Unknown]
  - Biopsy liver [Unknown]
  - Herpes zoster [Unknown]
  - Neurolysis [Unknown]
  - Cholelithiasis [Unknown]
  - Pneumonia [Unknown]
  - Neurolysis [Unknown]
  - Oral candidiasis [Unknown]
  - Tonsillectomy [Unknown]
  - Metastases to liver [Unknown]
  - Anxiety [Unknown]
  - Drug ineffective [Unknown]
  - Drug ineffective [Unknown]
  - Ductal adenocarcinoma of pancreas [Fatal]
  - Pancreaticoduodenectomy [Unknown]
  - Hyperlipidaemia [Unknown]
  - Bile duct stent insertion [Unknown]
  - Sedation [Unknown]
  - Osteoarthritis [Unknown]
  - Explorative laparotomy [Unknown]
  - Surgery [Unknown]
  - Glaucoma [Unknown]
  - Hypertension [Unknown]
  - Irritable bowel syndrome [Unknown]
  - Back pain [Unknown]
  - Dehydration [Unknown]
  - Constipation [Unknown]
  - Hyperglycaemia [Unknown]
  - Cholecystitis chronic [Not Recovered/Not Resolved]
  - Confusional state [Unknown]

NARRATIVE: CASE EVENT DATE: 201207
